FAERS Safety Report 5756605-9 (Version None)
Quarter: 2008Q2

REPORT INFORMATION
  Report Type: 
  Country: None (occurrence: None)
  Receive Date: 20080528
  Receipt Date: 20080520
  Transmission Date: 20081010
  Serious: Yes (Death, Life-Threatening, Hospitalization)
  Sender: FDA-Public Use
  Company Number: CLOF-1000057

PATIENT
  Age: 69 Year
  Sex: Female
  Weight: 66.4 kg

DRUGS (11)
  1. CLOLAR [Suspect]
     Indication: BONE MARROW CONDITIONING REGIMEN
     Dosage: 76 MG, QD, INTRAVENOUS
     Route: 042
     Dates: start: 20071114, end: 20071117
  2. CAMPATH [Suspect]
     Indication: BONE MARROW CONDITIONING REGIMEN
     Dosage: 20 MG, QD, INTRAVENOUS
     Route: 042
     Dates: start: 20071114, end: 20071117
  3. MELPHALAN (MELPHALAN) [Suspect]
     Indication: BONE MARROW CONDITIONING REGIMEN
     Dosage: 266 MG, ONCE, INTRAVENOUS
     Route: 042
     Dates: start: 20071126, end: 20071126
  4. DILANTIN KAPSEAL [Concomitant]
  5. METOPROLOL TARTRATE [Concomitant]
  6. HYDROCHLOROTHIAZIDE [Concomitant]
  7. FERROUS SULFATE TAB [Concomitant]
  8. ALLOPURINOL [Concomitant]
  9. POTASSIUM CHLORIDE [Concomitant]
  10. MULTIVITAMIN [Concomitant]
  11. KEPPRA [Concomitant]

REACTIONS (21)
  - AGITATION [None]
  - CARDIAC FAILURE CONGESTIVE [None]
  - CARDIOMEGALY [None]
  - CEREBRAL ISCHAEMIA [None]
  - DIARRHOEA [None]
  - DISORIENTATION [None]
  - DRUG LEVEL DECREASED [None]
  - DYSPNOEA [None]
  - GENERAL PHYSICAL HEALTH DETERIORATION [None]
  - HALLUCINATION, AUDITORY [None]
  - HALLUCINATION, VISUAL [None]
  - HYPOVOLAEMIA [None]
  - INFECTION [None]
  - MENTAL STATUS CHANGES [None]
  - METABOLIC ENCEPHALOPATHY [None]
  - NAUSEA [None]
  - NEUROLOGICAL SYMPTOM [None]
  - PLEURAL EFFUSION [None]
  - PNEUMOCYSTIS JIROVECI PNEUMONIA [None]
  - PULMONARY OEDEMA [None]
  - VOMITING [None]
